FAERS Safety Report 11967380 (Version 2)
Quarter: 2017Q1

REPORT INFORMATION
  Report Type: Spontaneous
  Country: US (occurrence: US)
  Receive Date: 20160127
  Receipt Date: 20170307
  Transmission Date: 20170428
  Serious: Yes (Other)
  Sender: FDA-Public Use
  Company Number: US-ELI_LILLY_AND_COMPANY-US201601009745

PATIENT
  Sex: Female

DRUGS (10)
  1. CYMBALTA [Suspect]
     Active Substance: DULOXETINE HYDROCHLORIDE
     Indication: DEPRESSION
     Dosage: 30 MG, QD
     Route: 065
     Dates: start: 20121127
  2. CYMBALTA [Suspect]
     Active Substance: DULOXETINE HYDROCHLORIDE
     Dosage: 60 MG, TWO DAILY
     Route: 065
  3. CYMBALTA [Suspect]
     Active Substance: DULOXETINE HYDROCHLORIDE
     Dosage: 30 MG, QD
     Route: 065
  4. FETZIMA [Suspect]
     Active Substance: LEVOMILNACIPRAN HYDROCHLORIDE
     Indication: DEPRESSION
     Dosage: 20 MG, EACH MORNING
     Route: 065
     Dates: start: 20141017
  5. CYMBALTA [Suspect]
     Active Substance: DULOXETINE HYDROCHLORIDE
     Dosage: 60 MG, QD
     Route: 065
     Dates: start: 201308
  6. CYMBALTA [Suspect]
     Active Substance: DULOXETINE HYDROCHLORIDE
     Indication: PAIN
     Dosage: UNK, UNKNOWN
     Route: 065
  7. DULOXETINE HYDROCHLORIDE. [Suspect]
     Active Substance: DULOXETINE HYDROCHLORIDE
     Indication: PAIN
  8. CYMBALTA [Suspect]
     Active Substance: DULOXETINE HYDROCHLORIDE
     Dosage: 30 MG, QD
     Route: 065
     Dates: start: 201308
  9. CYMBALTA [Suspect]
     Active Substance: DULOXETINE HYDROCHLORIDE
     Dosage: 60 MG, BID
     Route: 065
     Dates: start: 20121127
  10. DULOXETINE HYDROCHLORIDE. [Suspect]
     Active Substance: DULOXETINE HYDROCHLORIDE
     Indication: DEPRESSION
     Dosage: 60 MG, TWO DAILY
     Route: 065

REACTIONS (32)
  - Pressure of speech [Unknown]
  - Dizziness [Unknown]
  - Dysphoria [Unknown]
  - Confusional state [Unknown]
  - Sensory disturbance [Unknown]
  - Paraesthesia [Unknown]
  - Fatigue [Unknown]
  - Hyperhidrosis [Unknown]
  - Irritability [Unknown]
  - Headache [Unknown]
  - Affect lability [Unknown]
  - Hypomania [Unknown]
  - Tension [Unknown]
  - Tremor [Unknown]
  - Vomiting [Unknown]
  - Insomnia [Unknown]
  - Restlessness [Unknown]
  - Withdrawal syndrome [Unknown]
  - Anxiety [Unknown]
  - Suicidal ideation [Unknown]
  - Nausea [Unknown]
  - Tinnitus [Unknown]
  - Motion sickness [Unknown]
  - Feeling of despair [Unknown]
  - Feeling abnormal [Unknown]
  - Anger [Unknown]
  - Lethargy [Unknown]
  - Sleep disorder [Unknown]
  - Depressed mood [Unknown]
  - Agitation [Unknown]
  - Vertigo [Unknown]
  - Seizure [Unknown]
